FAERS Safety Report 12074198 (Version 1)
Quarter: 2016Q1

REPORT INFORMATION
  Report Type: Spontaneous
  Country: DE (occurrence: DE)
  Receive Date: 20160212
  Receipt Date: 20160212
  Transmission Date: 20160526
  Serious: Yes (Hospitalization)
  Sender: FDA-Public Use
  Company Number: US-ASTRAZENECA-2016SE14444

PATIENT
  Age: 20 Month
  Sex: Male

DRUGS (2)
  1. SYNAGIS [Suspect]
     Active Substance: PALIVIZUMAB
     Indication: BRONCHOPULMONARY DYSPLASIA
     Dosage: 1 ML PER 28 DAY
     Route: 030
     Dates: start: 201510
  2. SILDENAFIL. [Concomitant]
     Active Substance: SILDENAFIL
     Indication: ELECTROCARDIOGRAM QT INTERVAL ABNORMAL

REACTIONS (2)
  - Respiratory syncytial virus infection [Recovering/Resolving]
  - Bacterial infection [Recovering/Resolving]

NARRATIVE: CASE EVENT DATE: 201601
